FAERS Safety Report 8048389-9 (Version None)
Quarter: 2012Q1

REPORT INFORMATION
  Report Type: 
  Country: None (occurrence: None)
  Receive Date: 20120117
  Receipt Date: 20120112
  Transmission Date: 20120608
  Serious: No
  Sender: FDA-Public Use
  Company Number: US-PFIZER INC-2012010955

PATIENT
  Sex: Male
  Weight: 97.506 kg

DRUGS (2)
  1. LIPITOR [Suspect]
     Indication: BLOOD CHOLESTEROL ABNORMAL
     Dosage: UNK, DAILY
     Route: 048
     Dates: start: 20070101
  2. ALLOPURINOL [Concomitant]
     Indication: ANTACID THERAPY
     Dosage: 150 MG, DAILY

REACTIONS (2)
  - ABDOMINAL PAIN UPPER [None]
  - DIARRHOEA [None]
